FAERS Safety Report 17995836 (Version 5)
Quarter: 2022Q2

REPORT INFORMATION
  Report Type: Spontaneous
  Country: GB (occurrence: GB)
  Receive Date: 20200708
  Receipt Date: 20220506
  Transmission Date: 20220721
  Serious: Yes (Life-Threatening, Other)
  Sender: FDA-Public Use
  Company Number: NVSC2020GB186311

PATIENT
  Age: 48 Year
  Sex: Female

DRUGS (7)
  1. ESTRADIOL [Suspect]
     Active Substance: ESTRADIOL
     Indication: Menopause
     Dosage: 2 DF, QD (50 MCG PER 24 HOURS,2 PATCHES TOGETHER)
     Route: 062
  2. ESTRADIOL [Suspect]
     Active Substance: ESTRADIOL
     Dosage: UNK
     Route: 065
  3. MIRENA [Suspect]
     Active Substance: LEVONORGESTREL
     Indication: Menopause
     Dosage: UNK
     Route: 065
  4. ESTRADIOL\NORETHINDRONE ACETATE [Suspect]
     Active Substance: ESTRADIOL\NORETHINDRONE ACETATE
     Indication: Menopause
     Dosage: UNK
     Route: 065
  5. NORETHINDRONE ACETATE [Suspect]
     Active Substance: NORETHINDRONE ACETATE
     Indication: Menopause
     Dosage: UNK
     Route: 065
  6. SUMATRIPTAN [Concomitant]
     Active Substance: SUMATRIPTAN
     Indication: Migraine
     Dosage: UNK (FORMULATION: ENDOTRACHEOPULMONARY INSTILLATION)
     Route: 065
  7. AMITRIPTYLINE [Concomitant]
     Active Substance: AMITRIPTYLINE
     Indication: Migraine
     Dosage: UNK (FORMULATION: ENDOTRACHEOPULMONARY INSTILLATION)
     Route: 065

REACTIONS (9)
  - Arthralgia [Unknown]
  - Myalgia [Unknown]
  - Depression suicidal [Unknown]
  - Suicidal ideation [Unknown]
  - Medication error [Unknown]
  - Off label use [Unknown]
  - Product quality issue [Unknown]
  - Product supply issue [Unknown]
  - Wrong technique in product usage process [Unknown]

NARRATIVE: CASE EVENT DATE: 20200512
